FAERS Safety Report 17014815 (Version 1)
Quarter: 2019Q4

REPORT INFORMATION
  Report Type: Spontaneous
  Country: US (occurrence: US)
  Receive Date: 20191002
  Receipt Date: 20191002
  Transmission Date: 20200122
  Serious: No
  Sender: FDA-Public Use
  Company Number: None

PATIENT
  Age: 78 Year
  Sex: Male
  Weight: 82.56 kg

DRUGS (12)
  1. FLAX OIL [Concomitant]
  2. ATORVASTATIN [Concomitant]
     Active Substance: ATORVASTATIN
  3. COQ10 [Concomitant]
     Active Substance: UBIDECARENONE
  4. LISINOPRIL/HCTZ [Concomitant]
     Active Substance: HYDROCHLOROTHIAZIDE\LISINOPRIL
  5. MULTIVITAMIN/MINERALS [Concomitant]
  6. MAGNESIUM [Concomitant]
     Active Substance: MAGNESIUM
  7. METRONIDAZOLE TOPICAL CREAM [Suspect]
     Active Substance: METRONIDAZOLE
     Indication: ROSACEA
     Route: 061
     Dates: start: 20190906, end: 20190914
  8. OMEPRAZOLE. [Concomitant]
     Active Substance: OMEPRAZOLE
  9. GARLIC. [Concomitant]
     Active Substance: GARLIC
  10. FISH OIL [Concomitant]
     Active Substance: FISH OIL
  11. D [Concomitant]
  12. VIT. B12 [Concomitant]

REACTIONS (4)
  - Depression [None]
  - Application site swelling [None]
  - Anxiety [None]
  - Application site pain [None]

NARRATIVE: CASE EVENT DATE: 20190906
